FAERS Safety Report 9075214 (Version 1)
Quarter: 2013Q1

REPORT INFORMATION
  Report Type: Report from Study
  Country: US (occurrence: US)
  Receive Date: 20130131
  Receipt Date: 20130131
  Transmission Date: 20140127
  Serious: No
  Sender: FDA-Public Use
  Company Number: US-ABBOTT-12P-163-1006680-00

PATIENT
  Age: 55 Year
  Sex: Male

DRUGS (7)
  1. HUMIRA [Suspect]
     Indication: ANKYLOSING SPONDYLITIS
     Dates: start: 201205
  2. HUMIRA [Suspect]
     Dates: start: 201207
  3. DEPAKOTE [Concomitant]
     Indication: MENTAL DISORDER
  4. ZYPREXA [Concomitant]
     Indication: HALLUCINATION, AUDITORY
  5. VICODIN [Concomitant]
     Indication: PRODUCT USED FOR UNKNOWN INDICATION
  6. COGENTIN [Concomitant]
     Indication: MENTAL DISORDER
  7. HALDOL [Concomitant]
     Indication: MENTAL DISORDER

REACTIONS (2)
  - Cough [Not Recovered/Not Resolved]
  - Back pain [Not Recovered/Not Resolved]
